FAERS Safety Report 13725209 (Version 6)
Quarter: 2020Q1

REPORT INFORMATION
  Report Type: Spontaneous
  Country: JP (occurrence: JP)
  Receive Date: 20170706
  Receipt Date: 20200109
  Transmission Date: 20200409
  Serious: Yes (Hospitalization, Other)
  Sender: FDA-Public Use
  Company Number: JP-CELGENEUS-JPN-2017037428

PATIENT
  Age: 74 Year
  Sex: Male

DRUGS (35)
  1. LENADEX [Suspect]
     Active Substance: DEXAMETHASONE ACETATE
     Route: 048
     Dates: start: 20150317, end: 20150424
  2. VELCADE [Suspect]
     Active Substance: BORTEZOMIB
     Route: 065
     Dates: start: 20130820, end: 20130930
  3. POMALYST [Suspect]
     Active Substance: POMALIDOMIDE
     Indication: PLASMA CELL MYELOMA
     Dosage: 4 MILLIGRAM
     Route: 048
     Dates: start: 20150609, end: 20150629
  4. POMALYST [Suspect]
     Active Substance: POMALIDOMIDE
     Dosage: 3 MILLIGRAM
     Route: 048
     Dates: start: 20150728, end: 20150824
  5. POMALYST [Suspect]
     Active Substance: POMALIDOMIDE
     Dosage: 3 MILLIGRAM
     Route: 048
     Dates: start: 20151006, end: 20151011
  6. LENADEX [Suspect]
     Active Substance: DEXAMETHASONE ACETATE
     Route: 048
     Dates: start: 20141014, end: 20141103
  7. LENADEX [Suspect]
     Active Substance: DEXAMETHASONE ACETATE
     Route: 048
     Dates: start: 20150113, end: 20150309
  8. REVLIMID [Suspect]
     Active Substance: LENALIDOMIDE
     Route: 048
     Dates: start: 20131015, end: 20140707
  9. VELCADE [Suspect]
     Active Substance: BORTEZOMIB
     Indication: PLASMA CELL MYELOMA
     Route: 065
     Dates: start: 20130315, end: 20130807
  10. VELCADE [Suspect]
     Active Substance: BORTEZOMIB
     Route: 065
     Dates: start: 20150501, end: 20150504
  11. VELCADE [Suspect]
     Active Substance: BORTEZOMIB
     Route: 065
     Dates: start: 20141114, end: 20141227
  12. ACICLOVIR [Concomitant]
     Active Substance: ACYCLOVIR
     Indication: ANTIVIRAL PROPHYLAXIS
     Dosage: 200 MILLIGRAM
     Route: 048
     Dates: start: 20130315
  13. GASTER [Concomitant]
     Active Substance: FAMOTIDINE
     Indication: PROPHYLAXIS AGAINST GASTROINTESTINAL ULCER
     Dosage: 20 MILLIGRAM
     Route: 048
     Dates: start: 20130319
  14. FLUVASTATIN [Concomitant]
     Active Substance: FLUVASTATIN SODIUM
     Indication: HYPERCHOLESTEROLAEMIA
     Dosage: 20 MILLIGRAM
     Route: 065
  15. POMALYST [Suspect]
     Active Substance: POMALIDOMIDE
     Dosage: 2 MILLIGRAM
     Route: 048
     Dates: start: 20150714, end: 20150727
  16. LENADEX [Suspect]
     Active Substance: DEXAMETHASONE ACETATE
     Indication: PLASMA CELL MYELOMA
     Route: 048
     Dates: start: 20130315, end: 20130807
  17. REVLIMID [Suspect]
     Active Substance: LENALIDOMIDE
     Indication: PLASMA CELL MYELOMA
     Route: 048
     Dates: start: 20130820, end: 20130930
  18. REVLIMID [Suspect]
     Active Substance: LENALIDOMIDE
     Route: 048
     Dates: start: 20150113, end: 20150309
  19. REVLIMID [Suspect]
     Active Substance: LENALIDOMIDE
     Route: 048
     Dates: start: 20150317, end: 20150424
  20. VELCADE [Suspect]
     Active Substance: BORTEZOMIB
     Route: 065
     Dates: start: 20141014, end: 20141103
  21. ENDOXAN [Concomitant]
     Active Substance: CYCLOPHOSPHAMIDE
     Indication: PLASMA CELL MYELOMA
     Route: 065
     Dates: start: 20130315, end: 20130807
  22. PREDNISOLONE. [Concomitant]
     Active Substance: PREDNISOLONE
     Indication: PLASMA CELL MYELOMA
     Route: 065
     Dates: start: 20150501, end: 20150504
  23. BAYASPIRIN [Concomitant]
     Active Substance: ASPIRIN
     Indication: THROMBOSIS PROPHYLAXIS
     Dosage: 100 MILLIGRAM
     Route: 048
     Dates: start: 20150609
  24. POMALYST [Suspect]
     Active Substance: POMALIDOMIDE
     Dosage: 4 MILLIGRAM
     Route: 048
     Dates: start: 20151005, end: 20151005
  25. LENADEX [Suspect]
     Active Substance: DEXAMETHASONE ACETATE
     Dosage: 40 MILLIGRAM
     Route: 048
     Dates: start: 20150609
  26. REVLIMID [Suspect]
     Active Substance: LENALIDOMIDE
     Route: 048
     Dates: start: 20141014, end: 20141103
  27. VELCADE [Suspect]
     Active Substance: BORTEZOMIB
     Route: 065
     Dates: start: 20150113, end: 20150309
  28. ALKERAN [Concomitant]
     Active Substance: MELPHALAN
     Indication: PLASMA CELL MYELOMA
     Route: 065
     Dates: start: 20150501, end: 20150504
  29. LENADEX [Suspect]
     Active Substance: DEXAMETHASONE ACETATE
     Route: 048
     Dates: start: 20130820, end: 20130930
  30. LENADEX [Suspect]
     Active Substance: DEXAMETHASONE ACETATE
     Dosage: 40 MILLIGRAM
     Route: 048
     Dates: start: 20151005, end: 20151006
  31. LENADEX [Suspect]
     Active Substance: DEXAMETHASONE ACETATE
     Route: 048
     Dates: start: 20131015, end: 20140707
  32. LENADEX [Suspect]
     Active Substance: DEXAMETHASONE ACETATE
     Route: 048
     Dates: start: 20141114, end: 20141227
  33. BACTRAMIN [Concomitant]
     Active Substance: SULFAMETHOXAZOLE\TRIMETHOPRIM
     Indication: INFECTION PROPHYLAXIS
     Dosage: .5 DOSAGE FORMS
     Route: 048
     Dates: start: 20130324
  34. FLUCONAZOLE. [Concomitant]
     Active Substance: FLUCONAZOLE
     Indication: PROPHYLAXIS
     Dosage: 100 MILLIGRAM
     Route: 048
     Dates: start: 20150425
  35. WARFARIN [Concomitant]
     Active Substance: WARFARIN
     Indication: PRODUCT USED FOR UNKNOWN INDICATION
     Route: 065

REACTIONS (11)
  - Pain [Unknown]
  - Neuropathy peripheral [Unknown]
  - Deep vein thrombosis [Recovering/Resolving]
  - Osteoporosis [Unknown]
  - Constipation [Unknown]
  - Neutrophil count decreased [Unknown]
  - Hypoaesthesia [Recovering/Resolving]
  - Haemoglobin decreased [Unknown]
  - Neuropathy peripheral [Unknown]
  - International normalised ratio increased [Recovered/Resolved]
  - Pneumonia escherichia [Recovered/Resolved]

NARRATIVE: CASE EVENT DATE: 201310
